FAERS Safety Report 23047503 (Version 1)
Quarter: 2023Q4

REPORT INFORMATION
  Report Type: Other
  Country: AU (occurrence: AU)
  Receive Date: 20231010
  Receipt Date: 20231010
  Transmission Date: 20240110
  Serious: Yes (Other)
  Sender: FDA-Public Use
  Company Number: AU-TOLMAR, INC.-23AU043490

PATIENT
  Sex: Male

DRUGS (2)
  1. ELIGARD [Suspect]
     Active Substance: LEUPROLIDE ACETATE
     Indication: Prostate cancer
     Dosage: 45 MILLIGRAM, Q 6 MONTH
  2. ELIGARD [Suspect]
     Active Substance: LEUPROLIDE ACETATE
     Indication: Prostate cancer
     Dosage: UNK

REACTIONS (13)
  - Syncope [Recovered/Resolved]
  - Fall [Unknown]
  - Wound [Unknown]
  - Walking disability [Unknown]
  - Balance disorder [Unknown]
  - Apathy [Unknown]
  - Loss of personal independence in daily activities [Unknown]
  - Blood glucose increased [Unknown]
  - Muscle atrophy [Unknown]
  - Back pain [Unknown]
  - Hot flush [Unknown]
  - Weight increased [Unknown]
  - Asthenia [Unknown]
